FAERS Safety Report 18206891 (Version 1)
Quarter: 2020Q3

REPORT INFORMATION
  Report Type: Spontaneous
  Country: US (occurrence: US)
  Receive Date: 20200828
  Receipt Date: 20200828
  Transmission Date: 20201103
  Serious: Yes (Hospitalization)
  Sender: FDA-Public Use
  Company Number: US-LEXICON PHARMACEUTICALS, INC-20-1606-00688

PATIENT
  Age: 51 Year
  Sex: Female

DRUGS (1)
  1. XERMELO [Suspect]
     Active Substance: TELOTRISTAT ETHYL
     Indication: METASTATIC CARCINOID TUMOUR
     Dates: start: 20200304

REACTIONS (2)
  - Urinary tract infection [Unknown]
  - Dry mouth [Unknown]
